FAERS Safety Report 18644754 (Version 1)
Quarter: 2020Q4

REPORT INFORMATION
  Report Type: Spontaneous
  Country: HN (occurrence: HN)
  Receive Date: 20201221
  Receipt Date: 20201221
  Transmission Date: 20210114
  Serious: Yes (Life-Threatening, Other)
  Sender: FDA-Public Use
  Company Number: PHHY2018HN040967

PATIENT
  Age: 17 Year
  Sex: Female
  Weight: 59.86 kg

DRUGS (1)
  1. GLIVEC [Suspect]
     Active Substance: IMATINIB MESYLATE
     Indication: GASTROINTESTINAL STROMAL TUMOUR
     Dosage: 800 MG, UNK
     Route: 065
     Dates: start: 20160808, end: 20180625

REACTIONS (8)
  - Lymphadenopathy [Unknown]
  - Metastases to liver [Unknown]
  - Retroperitoneal lymphadenopathy [Unknown]
  - Metastases to stomach [Unknown]
  - Drug resistance [Unknown]
  - Gastrointestinal stromal tumour [Unknown]
  - Malignant neoplasm progression [Unknown]
  - Spinal cord disorder [Unknown]

NARRATIVE: CASE EVENT DATE: 20171120
